FAERS Safety Report 16084367 (Version 3)
Quarter: 2019Q2

REPORT INFORMATION
  Report Type: Spontaneous
  Country: US (occurrence: US)
  Receive Date: 20190318
  Receipt Date: 20190415
  Transmission Date: 20190711
  Serious: Yes (Other)
  Sender: FDA-Public Use
  Company Number: US-AMGEN INC.-USASP2019039968

PATIENT
  Age: 56 Year
  Sex: Female
  Weight: 91.61 kg

DRUGS (20)
  1. LORATADINE. [Concomitant]
     Active Substance: LORATADINE
     Dosage: 10 MILLIGRAM, QD
     Route: 065
  2. DOXYCYCLINE HYCLATE. [Concomitant]
     Active Substance: DOXYCYCLINE HYCLATE
     Dosage: 20 MILLIGRAM, QOD
     Route: 065
  3. VICTOZA [Concomitant]
     Active Substance: LIRAGLUTIDE
     Dosage: 1.8 MILLIGRAM, QD
     Route: 065
  4. BLACK CURRANT OIL [RIBES NIGRUM SEED OIL] [Concomitant]
     Dosage: 500 MILLIGRAM, QD
     Route: 065
  5. LUTEIN-ZEAXANTHIN [Concomitant]
     Dosage: 25 MG/ 5 MG, QD
     Route: 065
  6. METHYL B12 [Concomitant]
     Dosage: 5000 MICROGRAM, QD
     Route: 065
  7. METHIMAZOLE. [Concomitant]
     Active Substance: METHIMAZOLE
     Dosage: 15 MILLIGRAM, QD
     Route: 065
  8. RANITIDINE. [Concomitant]
     Active Substance: RANITIDINE
     Dosage: 150 MILLIGRAM, BID
     Route: 065
  9. CBD OIL [Concomitant]
     Active Substance: CANNABIDIOL\HERBALS
     Dosage: 4 DROP, QD (APPROX 10 MG)
     Route: 065
  10. MAGNESIUM [Concomitant]
     Active Substance: MAGNESIUM
     Dosage: 250 MILLIGRAM, QWK
     Route: 065
  11. PIOGLITAZONE HCL [Concomitant]
     Active Substance: PIOGLITAZONE
     Dosage: 45 MILLIGRAM, QD
     Route: 065
  12. BUPROPION HYDROCHLORIDE XL [Concomitant]
     Active Substance: BUPROPION HYDROCHLORIDE
     Dosage: 300 MILLIGRAM, QD
     Route: 065
  13. EVENING PRIMROSE OIL [Concomitant]
     Active Substance: EVENING PRIMROSE OIL\HERBALS
     Dosage: 1300 MILLIGRAM, QD
     Route: 065
  14. VITAMIN D3 [Concomitant]
     Active Substance: CHOLECALCIFEROL
     Dosage: 2000 INTERNATIONAL UNIT, QD
     Route: 065
  15. AIMOVIG [Suspect]
     Active Substance: ERENUMAB-AOOE
     Indication: HEADACHE
     Dosage: UNK UNK, Q4WK
     Route: 065
     Dates: start: 20190305, end: 20190305
  16. INVOKAMET [Concomitant]
     Active Substance: CANAGLIFLOZIN\METFORMIN HYDROCHLORIDE
     Dosage: 150/1000 MILLIGRAM, BID
     Route: 065
  17. LUMIGAN [Concomitant]
     Active Substance: BIMATOPROST
     Dosage: 1 DROP, QD (EACH EYE)
     Route: 065
  18. SELENIUM [Concomitant]
     Active Substance: SELENIUM
     Dosage: 100 MICROGRAM, QD
     Route: 065
  19. BILBERRY [VACCINIUM MYRTILLUS] [Concomitant]
     Dosage: 1000 MILLIGRAM, QD
     Route: 065
  20. ELDERBERRY [SAMBUCUS NIGRA] [Concomitant]
     Dosage: 100 MILLIGRAM (ONCE OR TWICE A WEEK)
     Route: 065

REACTIONS (3)
  - Malaise [Recovered/Resolved]
  - Dyspnoea [Recovered/Resolved]
  - Wheezing [Recovered/Resolved]

NARRATIVE: CASE EVENT DATE: 201903
